FAERS Safety Report 6970977-9 (Version None)
Quarter: 2010Q3

REPORT INFORMATION
  Report Type: 
  Country: None (occurrence: None)
  Receive Date: 20100908
  Receipt Date: 20100827
  Transmission Date: 20110219
  Serious: Yes (Hospitalization, Disabling, Other)
  Sender: FDA-Public Use
  Company Number: US-PFIZER INC-2010045858

PATIENT
  Sex: Female

DRUGS (11)
  1. CHANTIX [Suspect]
     Indication: SMOKING CESSATION THERAPY
     Dosage: 1 MG, UNK
     Dates: start: 20070308, end: 20080101
  2. NEURONTIN [Concomitant]
     Indication: CONVULSION
     Dosage: UNK
     Dates: start: 20070101
  3. VISTARIL [Concomitant]
     Indication: ANXIETY
     Dosage: UNK
     Dates: start: 20060101
  4. PREMARIN [Concomitant]
     Indication: ENDOCRINE DISORDER
     Dosage: UNK
     Dates: start: 19860101, end: 20090101
  5. DARVOCET [Concomitant]
     Indication: PAIN
     Dosage: UNK
     Dates: start: 19860101, end: 20090101
  6. PEPCID [Concomitant]
     Indication: GASTROOESOPHAGEAL REFLUX DISEASE
     Dosage: UNK
  7. PEPCID [Concomitant]
     Indication: ULCER
  8. BENADRYL [Concomitant]
     Indication: HYPERSENSITIVITY
     Dosage: UNK
     Dates: start: 20000101
  9. CORTISONE [Concomitant]
     Indication: BURSITIS
     Dosage: UNK
     Dates: start: 19880101, end: 20100101
  10. MAALOX [Concomitant]
     Indication: REFLUX OESOPHAGITIS
     Dosage: UNK
  11. MAALOX [Concomitant]
     Indication: ULCER

REACTIONS (12)
  - AGGRESSION [None]
  - ANXIETY [None]
  - CONTUSION [None]
  - DEPRESSION [None]
  - FOOT FRACTURE [None]
  - HAEMORRHAGE [None]
  - INTENTIONAL OVERDOSE [None]
  - JOINT INJURY [None]
  - MENTAL DISORDER [None]
  - ROAD TRAFFIC ACCIDENT [None]
  - SUICIDE ATTEMPT [None]
  - THROMBOSIS [None]
